FAERS Safety Report 15004219 (Version 1)
Quarter: 2018Q2

REPORT INFORMATION
  Report Type: Spontaneous
  Country: US (occurrence: US)
  Receive Date: 20180613
  Receipt Date: 20180613
  Transmission Date: 20180711
  Serious: Yes (Hospitalization)
  Sender: FDA-Public Use
  Company Number: US-BRISTOL-MYERS SQUIBB COMPANY-BMS-2018-051178

PATIENT
  Age: 69 Year
  Sex: Male

DRUGS (1)
  1. YERVOY [Suspect]
     Active Substance: IPILIMUMAB
     Indication: MALIGNANT MELANOMA
     Dosage: 10 MG/KG, UNK
     Route: 042
     Dates: start: 20171214, end: 20180215

REACTIONS (4)
  - Prescribed overdose [Unknown]
  - Diarrhoea [Unknown]
  - Coronary artery disease [Unknown]
  - Hypertension [Unknown]

NARRATIVE: CASE EVENT DATE: 20180505
